FAERS Safety Report 5245011-1 (Version None)
Quarter: 2007Q1

REPORT INFORMATION
  Report Type: 
  Country: None (occurrence: None)
  Receive Date: 20070223
  Receipt Date: 20070213
  Transmission Date: 20070707
  Serious: Yes (Other)
  Sender: FDA-Public Use
  Company Number: PHNU2007DE00886

PATIENT
  Age: 61 Year
  Sex: Male
  Weight: 125 kg

DRUGS (2)
  1. VALSARTAN AND HYDROCHLOROTHIAZIDE [Suspect]
     Indication: HYPERTENSION
     Dosage: 1 DF, Q12H
     Dates: start: 20000101, end: 20000101
  2. NORVASC [Suspect]
     Indication: HYPERTENSION
     Dosage: UNK, UNK
     Dates: start: 20000101, end: 20000101

REACTIONS (3)
  - JOINT EFFUSION [None]
  - MYALGIA [None]
  - OSTEOARTHRITIS [None]
